FAERS Safety Report 8006455-8 (Version None)
Quarter: 2011Q4

REPORT INFORMATION
  Report Type: 
  Country: None (occurrence: None)
  Receive Date: 20111226
  Receipt Date: 20111209
  Transmission Date: 20120403
  Serious: Yes (Hospitalization)
  Sender: FDA-Public Use
  Company Number: PHHO2011DE018791

PATIENT
  Sex: Female
  Weight: 49.8 kg

DRUGS (28)
  1. LBH589 [Suspect]
     Dosage: 20 MG EVERY SECOND DAY
     Route: 048
     Dates: start: 20110801, end: 20111022
  2. TINZAPARIN [Concomitant]
     Indication: HYPERCOAGULATION
     Dosage: UNK
     Dates: start: 20090101, end: 20110711
  3. LEVOTHYROXINE SODIUM [Concomitant]
     Dosage: 100 UG, UNK
     Dates: start: 20110825
  4. BALDRACIN [Concomitant]
     Indication: PROPHYLAXIS
     Dosage: UNK
     Dates: start: 20110805, end: 20110805
  5. LBH589 [Suspect]
     Indication: GASTROINTESTINAL STROMAL TUMOUR
     Dosage: 30 MG EVERY SECOND DAY
     Route: 048
     Dates: start: 20110714, end: 20110801
  6. OLMESARTAN MEDOXOMIL [Concomitant]
     Indication: HYPERTENSION
     Dosage: 40 MG, UNK
     Dates: end: 20110728
  7. ENOXAPARIN SODIUM [Concomitant]
     Indication: HYPERCOAGULATION
     Dosage: 0.5 MG, UNK
     Dates: start: 20110713, end: 20110803
  8. VOMEX [Concomitant]
     Indication: PROPHYLAXIS OF NAUSEA AND VOMITING
     Dosage: UNK
     Dates: start: 20110902
  9. DORMO-PUREN [Concomitant]
     Indication: PROPHYLAXIS
     Dosage: UNK
     Dates: start: 20110806, end: 20110807
  10. LEVOTHYROXINE SODIUM [Concomitant]
     Indication: HYPOTHYROIDISM
     Dosage: 50 UG, UNK
     Dates: start: 19840101, end: 20110727
  11. LEVOTHYROXINE SODIUM [Concomitant]
     Dosage: 75 UG, UNK
     Dates: start: 20110728, end: 20110824
  12. JONOSTERIL [Concomitant]
     Dosage: UNK
     Dates: start: 20110802, end: 20110805
  13. TORSEMIDE [Concomitant]
     Indication: OEDEMA PERIPHERAL
     Dosage: 5 MG, UNK
     Dates: start: 20110721
  14. RED BLOOD CELLS [Concomitant]
     Indication: ANAEMIA
     Dosage: UNK
     Dates: start: 20110802, end: 20110802
  15. GLEEVEC [Suspect]
     Indication: GASTROINTESTINAL STROMAL TUMOUR
     Dosage: 400 MG, QD
     Route: 048
     Dates: start: 20110707, end: 20111022
  16. CALCIMAGON [Concomitant]
     Indication: OSTEOPOROSIS
     Dosage: UNK
     Dates: start: 20110612, end: 20111026
  17. JONOSTERIL [Concomitant]
     Dosage: 1000 ML DAILY
     Route: 042
     Dates: start: 20111027, end: 20111102
  18. NOVAMINSULFON [Concomitant]
     Dosage: 500 MG, UNK
     Dates: start: 20111103
  19. ZOFRAN [Concomitant]
     Indication: VOMITING
     Dosage: UNK
     Dates: start: 20110713, end: 20110713
  20. AMLODIPINE [Concomitant]
     Indication: HYPERTENSION
     Dosage: UNK
     Dates: end: 20110728
  21. MAGNESIUM [Concomitant]
     Indication: PROPHYLAXIS
     Dosage: UNK
     Dates: start: 20110627, end: 20111026
  22. JONOSTERIL [Concomitant]
     Indication: PROPHYLAXIS
     Dosage: UNK
     Dates: start: 20110714, end: 20110714
  23. RAMIPRIL [Concomitant]
     Indication: HYPERTENSION
     Dosage: 2.5 UG, UNK
     Dates: start: 20110825
  24. SPIRONOLACTONE [Concomitant]
     Indication: OEDEMA PERIPHERAL
     Dosage: 50 MG, UNK
     Dates: start: 20110721
  25. LEVOFLOXACIN [Concomitant]
     Indication: CYSTITIS
     Dosage: 500 MG, BID
     Dates: start: 20110825, end: 20110901
  26. NOVAMINSULFON [Concomitant]
     Indication: PAIN IN EXTREMITY
     Dosage: 500 MG, UNK
     Dates: start: 20110713, end: 20110715
  27. TINZAPARIN [Concomitant]
     Indication: PAIN IN EXTREMITY
     Dosage: UNK
     Dates: start: 20110811, end: 20111021
  28. ENOXAPARIN SODIUM [Concomitant]
     Dosage: 60 MG, DAILY
     Route: 058
     Dates: start: 20111028

REACTIONS (6)
  - THROMBOCYTOPENIA [None]
  - CEREBRAL HAEMORRHAGE [None]
  - NEOPLASM MALIGNANT [None]
  - GRAND MAL CONVULSION [None]
  - NEOPLASM PROGRESSION [None]
  - HYPERTENSIVE CRISIS [None]
